FAERS Safety Report 7024467-8 (Version None)
Quarter: 2010Q4

REPORT INFORMATION
  Report Type: 
  Country: None (occurrence: None)
  Receive Date: 20101001
  Receipt Date: 20100929
  Transmission Date: 20110411
  Serious: Yes (Hospitalization)
  Sender: FDA-Public Use
  Company Number: A0544823A

PATIENT
  Age: 37 Year
  Sex: Male
  Weight: 100 kg

DRUGS (5)
  1. PAXIL [Suspect]
     Indication: ANXIETY
     Route: 048
     Dates: start: 20020422, end: 20020817
  2. CLORAZEPATE DIPOTASSIUM [Suspect]
     Indication: ANXIETY
     Dosage: 7.5MG AS REQUIRED
     Route: 048
  3. ALLEGRA [Concomitant]
  4. ANTIBIOTIC [Concomitant]
     Indication: TOOTH ABSCESS
     Dates: start: 20020601
  5. VENTOLIN [Concomitant]

REACTIONS (22)
  - ABNORMAL BEHAVIOUR [None]
  - AGGRESSION [None]
  - ASTHENIA [None]
  - BIPOLAR DISORDER [None]
  - CONFUSIONAL STATE [None]
  - DECREASED APPETITE [None]
  - DISTURBANCE IN ATTENTION [None]
  - DRUG INEFFECTIVE [None]
  - FEELING ABNORMAL [None]
  - HEARING IMPAIRED [None]
  - IMPULSIVE BEHAVIOUR [None]
  - INSOMNIA [None]
  - IRRITABILITY [None]
  - MANIA [None]
  - NIGHTMARE [None]
  - SLEEP DISORDER [None]
  - SUICIDAL IDEATION [None]
  - SUICIDE ATTEMPT [None]
  - THINKING ABNORMAL [None]
  - TREMOR [None]
  - WEIGHT DECREASED [None]
  - WITHDRAWAL SYNDROME [None]
